FAERS Safety Report 10301477 (Version 1)
Quarter: 2014Q3

REPORT INFORMATION
  Report Type: Spontaneous
  Country: US (occurrence: US)
  Receive Date: 20140714
  Receipt Date: 20140714
  Transmission Date: 20150326
  Serious: Yes (Other)
  Sender: FDA-Public Use
  Company Number: PHEH2014US013858

PATIENT
  Sex: Female

DRUGS (2)
  1. RECLAST [Suspect]
     Active Substance: ZOLEDRONIC ACID
     Indication: OSTEOPENIA
  2. RECLAST [Suspect]
     Active Substance: ZOLEDRONIC ACID
     Indication: OSTEOPOROSIS
     Dosage: UNK UKN, UNK
     Route: 042
     Dates: start: 2008, end: 2010

REACTIONS (8)
  - Stress fracture [Unknown]
  - Low turnover osteopathy [Unknown]
  - Pain [Unknown]
  - Anhedonia [Unknown]
  - Injury [Unknown]
  - Anxiety [Unknown]
  - Emotional distress [Unknown]
  - Femur fracture [Unknown]
